FAERS Safety Report 4463123-7 (Version None)
Quarter: 2004Q3

REPORT INFORMATION
  Report Type: 
  Country: None (occurrence: None)
  Receive Date: 20040928
  Receipt Date: 20040917
  Transmission Date: 20050211
  Serious: Yes (Other)
  Sender: FDA-Public Use
  Company Number: 209125

PATIENT
  Sex: Female

DRUGS (1)
  1. XOLAIR [Suspect]

REACTIONS (3)
  - ARTHRALGIA [None]
  - BRAIN OEDEMA [None]
  - MIGRAINE [None]
